FAERS Safety Report 25870197 (Version 1)
Quarter: 2025Q4

REPORT INFORMATION
  Report Type: Spontaneous
  Country: IL (occurrence: IL)
  Receive Date: 20251001
  Receipt Date: 20251001
  Transmission Date: 20260118
  Serious: No
  Sender: TRAVERE THERAPEUTICS
  Company Number: IL-TRAVERE-2025TVT01558

PATIENT
  Sex: Female

DRUGS (1)
  1. FILSPARI [Suspect]
     Active Substance: SPARSENTAN
     Indication: IgA nephropathy
     Dosage: 8103-0001GENMEDIX C/O PROMEDICO?PRO-42761?NDC: 68974-400-30?QUANTITY: 9
     Route: 048
     Dates: start: 202409

REACTIONS (1)
  - Oedema peripheral [Unknown]

NARRATIVE: CASE EVENT DATE: 20250116
